FAERS Safety Report 11137172 (Version 2)
Quarter: 2015Q2

REPORT INFORMATION
  Report Type: Report from Study
  Country: AU (occurrence: AU)
  Receive Date: 20150526
  Receipt Date: 20150618
  Transmission Date: 20150821
  Serious: Yes (Hospitalization)
  Sender: FDA-Public Use
  Company Number: AU-GLAXOSMITHKLINE-AU2015GSK063114

PATIENT
  Age: 85 Year
  Sex: Female
  Weight: 54 kg

DRUGS (22)
  1. AUGMENTIN DUO FORTE [Concomitant]
     Active Substance: AMOXICILLIN\CLAVULANATE POTASSIUM
  2. PANADOL [Concomitant]
     Active Substance: ACETAMINOPHEN
     Indication: PAIN
     Dosage: 665 DF, PRN
     Route: 048
     Dates: start: 20121106
  3. VALIUM [Concomitant]
     Active Substance: DIAZEPAM
  4. ROXITHROMYCIN [Concomitant]
     Active Substance: ROXITHROMYCIN
  5. MAXOLON [Concomitant]
     Active Substance: METOCLOPRAMIDE HYDROCHLORIDE
  6. PREDNISONE. [Concomitant]
     Active Substance: PREDNISONE
  7. OMEPRAZOLE. [Concomitant]
     Active Substance: OMEPRAZOLE
     Indication: GASTROOESOPHAGEAL REFLUX DISEASE
     Dosage: 20 DF, 1D
     Route: 048
     Dates: start: 20121112
  8. CIPROFLOXACIN. [Concomitant]
     Active Substance: CIPROFLOXACIN
  9. METOCLOPRAMIDE. [Concomitant]
     Active Substance: METOCLOPRAMIDE
  10. MOVICOL [Concomitant]
     Active Substance: POLYETHYLENE GLYCOL 3350\POTASSIUM CHLORIDE\SODIUM BICARBONATE\SODIUM CHLORIDE
  11. MAGNESIUM ASPARTATE [Concomitant]
     Active Substance: MAGNESIUM ASPARTATE
     Indication: MUSCLE SPASMS
     Dosage: 500 MG, 1D
     Route: 048
     Dates: start: 20121106
  12. CEPHALEXIN. [Concomitant]
     Active Substance: CEPHALEXIN
  13. GLYCERYL TRINITRATE [Concomitant]
     Active Substance: NITROGLYCERIN
  14. MOXONIDINE [Concomitant]
     Active Substance: MOXONIDINE
  15. ZANIDIP [Concomitant]
     Active Substance: LERCANIDIPINE HYDROCHLORIDE
  16. FRUSEMIDE [Concomitant]
     Active Substance: FUROSEMIDE
  17. PAZOPANIB [Suspect]
     Active Substance: PAZOPANIB
     Indication: METASTATIC RENAL CELL CARCINOMA
  18. VOLTAREN [Concomitant]
     Active Substance: DICLOFENAC SODIUM
  19. HYDRALAZINE [Concomitant]
     Active Substance: HYDRALAZINE HYDROCHLORIDE
  20. MOBIC [Concomitant]
     Active Substance: MELOXICAM
  21. PANADOL [Concomitant]
     Active Substance: ACETAMINOPHEN
  22. GLYCERYL TRINITRATE PATCH [Concomitant]

REACTIONS (2)
  - Oedema peripheral [Recovered/Resolved]
  - Asthma [Recovered/Resolved]

NARRATIVE: CASE EVENT DATE: 20150427
